FAERS Safety Report 9935364 (Version 1)
Quarter: 2014Q1

REPORT INFORMATION
  Report Type: Spontaneous
  Country: US (occurrence: US)
  Receive Date: 20140228
  Receipt Date: 20140228
  Transmission Date: 20141002
  Serious: No
  Sender: FDA-Public Use
  Company Number: US-PFIZER INC-2014058056

PATIENT
  Age: 56 Year
  Sex: Female
  Weight: 86.17 kg

DRUGS (2)
  1. GABAPENTIN [Suspect]
     Dosage: UNK
  2. ZANTAC [Concomitant]
     Indication: GASTROOESOPHAGEAL REFLUX DISEASE
     Dosage: UNK

REACTIONS (2)
  - Somnolence [Unknown]
  - Malaise [Unknown]
